FAERS Safety Report 6799169-3 (Version None)
Quarter: 2010Q2

REPORT INFORMATION
  Report Type: 
  Country: None (occurrence: None)
  Receive Date: 20100615
  Receipt Date: 20100608
  Transmission Date: 20101027
  Serious: Yes (Hospitalization, Other)
  Sender: FDA-Public Use
  Company Number: 2005-136056-NL

PATIENT
  Age: 36 Year
  Sex: Female
  Weight: 72.6 kg

DRUGS (7)
  1. NUVARING [Suspect]
     Indication: ENDOMETRIOSIS
     Dosage: VAG
     Route: 067
     Dates: start: 20040901, end: 20051118
  2. ADVAIR DISKUS 100/50 [Concomitant]
  3. ALBUTEROL [Concomitant]
  4. PROMETHAZINE [Concomitant]
  5. HYDROCODONE BITARTRATE AND ACETAMINOPHEN [Concomitant]
  6. ZYRTEC [Concomitant]
  7. LORTAB [Concomitant]

REACTIONS (40)
  - BRONCHITIS [None]
  - CHONDROSARCOMA [None]
  - COMPUTERISED TOMOGRAM ABNORMAL [None]
  - CYST [None]
  - DEEP VEIN THROMBOSIS [None]
  - DISEASE RECURRENCE [None]
  - DYSGEUSIA [None]
  - DYSMENORRHOEA [None]
  - ENDOMETRIOSIS [None]
  - EYE DISORDER [None]
  - FIBROUS DYSPLASIA OF BONE [None]
  - HAEMATOMA [None]
  - HAEMATURIA [None]
  - HAEMOGLOBIN DECREASED [None]
  - HAEMOPTYSIS [None]
  - HAEMORRHAGE [None]
  - HEADACHE [None]
  - LARYNGITIS [None]
  - LIPOSUCTION [None]
  - MAMMOPLASTY [None]
  - MENOMETRORRHAGIA [None]
  - MENSTRUATION DELAYED [None]
  - MUSCLE SPASMS [None]
  - NEPHROLITHIASIS [None]
  - NEURILEMMOMA [None]
  - NEUROFIBROMA [None]
  - OVARIAN CYST [None]
  - PALPITATIONS [None]
  - PNEUMONIA [None]
  - POST THROMBOTIC SYNDROME [None]
  - PULMONARY EMBOLISM [None]
  - SCIATICA [None]
  - STRESS [None]
  - TACHYCARDIA [None]
  - THROMBOSIS IN DEVICE [None]
  - TONSILLITIS BACTERIAL [None]
  - UPPER RESPIRATORY TRACT INFECTION [None]
  - UTERINE POLYP [None]
  - WALKING AID USER [None]
  - WHEELCHAIR USER [None]
